FAERS Safety Report 13145213 (Version 1)
Quarter: 2017Q1

REPORT INFORMATION
  Report Type: Spontaneous
  Country: US (occurrence: US)
  Receive Date: 20170124
  Receipt Date: 20170124
  Transmission Date: 20170428
  Serious: Yes (Hospitalization, Other)
  Sender: FDA-Public Use
  Company Number: US-ELI_LILLY_AND_COMPANY-US201607011793

PATIENT
  Sex: Male

DRUGS (5)
  1. CYMBALTA [Suspect]
     Active Substance: DULOXETINE HYDROCHLORIDE
     Indication: AFFECTIVE DISORDER
     Dosage: 60 MG, BID
     Route: 048
     Dates: start: 20090730
  2. CYMBALTA [Suspect]
     Active Substance: DULOXETINE HYDROCHLORIDE
     Dosage: 30 MG, EACH EVENING
     Route: 048
     Dates: start: 20091222
  3. CYMBALTA [Suspect]
     Active Substance: DULOXETINE HYDROCHLORIDE
     Dosage: 30 MG, BID
     Route: 048
     Dates: start: 201104, end: 20111123
  4. CYMBALTA [Suspect]
     Active Substance: DULOXETINE HYDROCHLORIDE
     Dosage: 120 MG, EACH MORNING
     Route: 048
  5. CYMBALTA [Suspect]
     Active Substance: DULOXETINE HYDROCHLORIDE
     Indication: ANXIETY
     Dosage: 60 MG, EACH MORNING
     Route: 048
     Dates: start: 20091222

REACTIONS (7)
  - Fall [Unknown]
  - Dizziness [Unknown]
  - Tremor [Unknown]
  - Drug withdrawal syndrome [Unknown]
  - Lower limb fracture [Unknown]
  - Paraesthesia [Unknown]
  - Confusional state [Unknown]
